FAERS Safety Report 6864812-7 (Version None)
Quarter: 2010Q3

REPORT INFORMATION
  Report Type: 
  Country: None (occurrence: None)
  Receive Date: 20100721
  Receipt Date: 20080523
  Transmission Date: 20110219
  Serious: No
  Sender: FDA-Public Use
  Company Number: US-PFIZER INC-2008031497

PATIENT
  Sex: Female
  Weight: 72.57 kg

DRUGS (4)
  1. CHANTIX [Suspect]
     Indication: SMOKING CESSATION THERAPY
     Dates: start: 20080401, end: 20080402
  2. HYDROCHLOROTHIAZIDE [Concomitant]
     Indication: HYPERTENSION
  3. NAPROXEN [Concomitant]
     Indication: ARTHROPATHY
  4. CLARITIN [Concomitant]
     Indication: HYPERSENSITIVITY

REACTIONS (5)
  - FEELING ABNORMAL [None]
  - HEADACHE [None]
  - HYPERHIDROSIS [None]
  - INSOMNIA [None]
  - NAUSEA [None]
